FAERS Safety Report 23313906 (Version 1)
Quarter: 2023Q4

REPORT INFORMATION
  Report Type: Spontaneous
  Country: NL (occurrence: NL)
  Receive Date: 20231219
  Receipt Date: 20231219
  Transmission Date: 20240109
  Serious: Yes (Hospitalization, Other)
  Sender: FDA-Public Use
  Company Number: None

PATIENT
  Age: 80 Year
  Sex: Male

DRUGS (7)
  1. FOSINOPRIL [Suspect]
     Active Substance: FOSINOPRIL
     Indication: Ischaemic heart disease prophylaxis
     Dosage: 20 MILLIGRAM, QH (1D1T)
     Route: 065
     Dates: start: 20151223, end: 20231009
  2. FOSINOPRIL [Suspect]
     Active Substance: FOSINOPRIL
     Indication: Hypertension
  3. OMEPRAZOLE [Suspect]
     Active Substance: OMEPRAZOLE
     Indication: Prophylaxis against gastrointestinal ulcer
     Dosage: 20 MILLIGRAM, QD (1D1C)
     Route: 065
     Dates: start: 20230703, end: 20231009
  4. ROSUVASTATIN [Concomitant]
     Active Substance: ROSUVASTATIN
     Dosage: 20 MILLIGRAM
     Route: 065
  5. METOPROLOL [Concomitant]
     Active Substance: METOPROLOL
     Dosage: 50 MILLIGRAM
     Route: 065
  6. ASPIRIN [Concomitant]
     Active Substance: ASPIRIN
     Dosage: 80 MILLIGRAM
     Route: 065
  7. TAMSULOSIN HYDROCHLORIDE [Concomitant]
     Active Substance: TAMSULOSIN HYDROCHLORIDE
     Dosage: 0.4 MILLIGRAM REGULATED-RELEASE CAPSULE
     Route: 065

REACTIONS (2)
  - Acute kidney injury [Recovering/Resolving]
  - Angioedema [Recovered/Resolved]

NARRATIVE: CASE EVENT DATE: 20231001
